FAERS Safety Report 10046591 (Version 1)
Quarter: 2014Q1

REPORT INFORMATION
  Report Type: Spontaneous
  Country: US (occurrence: US)
  Receive Date: 20140331
  Receipt Date: 20140331
  Transmission Date: 20141002
  Serious: No
  Sender: FDA-Public Use
  Company Number: US-BIOGENIDEC-2014BI028464

PATIENT
  Age: 40 Year
  Sex: Male
  Weight: 70 kg

DRUGS (5)
  1. TECFIDERA [Suspect]
     Indication: PRODUCT USED FOR UNKNOWN INDICATION
     Route: 048
     Dates: end: 201312
  2. CARDURA [Concomitant]
  3. LYRICA [Concomitant]
  4. METOPROLOL ER [Concomitant]
  5. AMITRIPTYLIN [Concomitant]

REACTIONS (2)
  - Pyrexia [Recovered/Resolved]
  - Bacterial infection [Unknown]
